FAERS Safety Report 8444396-2 (Version None)
Quarter: 2012Q2

REPORT INFORMATION
  Report Type: 
  Country: None (occurrence: None)
  Receive Date: 20120612
  Receipt Date: 20120612
  Transmission Date: 20120825
  Serious: No
  Sender: FDA-Public Use
  Company Number: None

PATIENT

DRUGS (4)
  1. BACLOFEN [Suspect]
     Dosage: ORAL
     Route: 048
  2. GABAPENTIN [Suspect]
     Dosage: ORAL
     Route: 048
  3. PREDNISONE TAB [Suspect]
     Dosage: ORAL
     Route: 048
  4. ALPRAZOLAM [Suspect]
     Dosage: ORAL
     Route: 048

REACTIONS (4)
  - DRUG ADMINISTRATION ERROR [None]
  - MEDICATION ERROR [None]
  - DRUG DISPENSING ERROR [None]
  - SOMNOLENCE [None]
